FAERS Safety Report 19097984 (Version 5)
Quarter: 2021Q4

REPORT INFORMATION
  Report Type: Report from Study
  Country: US (occurrence: US)
  Receive Date: 20210406
  Receipt Date: 20211009
  Transmission Date: 20220303
  Serious: No
  Sender: FDA-Public Use
  Company Number: NVSC2021US076605

PATIENT
  Age: 52 Year
  Sex: Female

DRUGS (1)
  1. COSENTYX [Suspect]
     Active Substance: SECUKINUMAB
     Indication: Psoriasis
     Dosage: UNK UNK, UNKNOWN
     Route: 058

REACTIONS (5)
  - Rubber sensitivity [Recovered/Resolved]
  - Skin burning sensation [Recovered/Resolved]
  - Skin swelling [Recovered/Resolved]
  - Rash [Recovered/Resolved]
  - Nasopharyngitis [Unknown]
